FAERS Safety Report 8268065-7 (Version None)
Quarter: 2012Q2

REPORT INFORMATION
  Report Type: 
  Country: None (occurrence: None)
  Receive Date: 20120404
  Receipt Date: 20120330
  Transmission Date: 20120825
  Serious: Yes (Other)
  Sender: FDA-Public Use
  Company Number: 2011SP034944

PATIENT
  Age: 68 Year
  Sex: Female
  Weight: 47.6 kg

DRUGS (10)
  1. AMLODIPINE /00972402/ [Concomitant]
  2. LOXONIN (LOXOPROFEN SODIUM) [Concomitant]
  3. OLMESARTAN MEDOXOMIL [Concomitant]
  4. SEDEKOPAN [Concomitant]
  5. INTERFERON BETA NOS [Suspect]
     Indication: CHRONIC HEPATITIS
     Dosage: 6 MIU;QD;IV 6 MIU;TIW;IV
     Route: 042
     Dates: start: 20100626
  6. INTERFERON BETA NOS [Suspect]
     Indication: CHRONIC HEPATITIS
     Dosage: 6 MIU;QD;IV 6 MIU;TIW;IV
     Route: 042
     Dates: start: 20100612, end: 20100625
  7. ZESTROMIN [Concomitant]
  8. REBETOL [Suspect]
     Indication: CHRONIC HEPATITIS
     Dosage: 600 MG;QD;PO 400 MG;QD;PO
     Dates: start: 20100612, end: 20100723
  9. REBETOL [Suspect]
     Indication: CHRONIC HEPATITIS
     Dosage: 600 MG;QD;PO 400 MG;QD;PO
     Dates: start: 20100724
  10. ZOLPIDEM [Concomitant]

REACTIONS (1)
  - BLOOD GLUCOSE INCREASED [None]
